FAERS Safety Report 7901094-9 (Version None)
Quarter: 2011Q4

REPORT INFORMATION
  Report Type: 
  Country: None (occurrence: None)
  Receive Date: 20111108
  Receipt Date: 20111103
  Transmission Date: 20120403
  Serious: Yes (Death, Other)
  Sender: FDA-Public Use
  Company Number: US-PFIZER INC-2011268160

PATIENT
  Sex: Male

DRUGS (1)
  1. REVATIO [Suspect]
     Indication: PULMONARY HYPERTENSION
     Dosage: 20 MG, 3X/DAY
     Dates: start: 20110810, end: 20110921

REACTIONS (2)
  - RESPIRATORY FAILURE [None]
  - PULMONARY FIBROSIS [None]
